FAERS Safety Report 5832661-4 (Version None)
Quarter: 2008Q3

REPORT INFORMATION
  Report Type: 
  Country: None (occurrence: None)
  Receive Date: 20080804
  Receipt Date: 20080728
  Transmission Date: 20090109
  Serious: Yes (Other)
  Sender: FDA-Public Use
  Company Number: PHHY2008JP11617

PATIENT
  Sex: Female

DRUGS (3)
  1. LUDIOMIL [Suspect]
     Indication: DEPRESSION
     Dosage: 25 MG /DAY
     Route: 048
     Dates: start: 20080603, end: 20080617
  2. LUDIOMIL [Suspect]
     Dosage: 75 MG
     Route: 048
     Dates: start: 20080603, end: 20080617
  3. SOLANAX [Concomitant]
     Indication: DEPRESSION
     Dosage: 0.4 MG, TID
     Route: 048
     Dates: start: 20080603, end: 20080617

REACTIONS (5)
  - ERYTHEMA MULTIFORME [None]
  - FACE OEDEMA [None]
  - FLUSHING [None]
  - GENERALISED ERYTHEMA [None]
  - RASH [None]
